FAERS Safety Report 6135667-3 (Version None)
Quarter: 2009Q1

REPORT INFORMATION
  Report Type: 
  Country: None (occurrence: None)
  Receive Date: 20090327
  Receipt Date: 20090325
  Transmission Date: 20090719
  Serious: Yes (Other)
  Sender: FDA-Public Use
  Company Number: FR-WYE-G03005309

PATIENT
  Sex: Male
  Weight: 25 kg

DRUGS (7)
  1. TYGACIL [Suspect]
     Indication: OSTEOMYELITIS BACTERIAL
     Route: 042
     Dates: start: 20081203, end: 20090130
  2. TYGACIL [Suspect]
     Indication: ENTEROBACTER INFECTION
     Route: 042
     Dates: start: 20090210, end: 20090228
  3. RIFAMPICIN [Concomitant]
     Indication: OSTEOMYELITIS BACTERIAL
     Route: 042
     Dates: start: 20081130, end: 20090210
  4. RIFAMPICIN [Concomitant]
     Indication: ENTEROBACTER INFECTION
  5. COLIMYCINE [Concomitant]
     Indication: OSTEOMYELITIS BACTERIAL
     Dosage: 3.75 MIU TOTAL DAILY
     Route: 042
     Dates: start: 20081118, end: 20081217
  6. COLIMYCINE [Concomitant]
     Indication: ENTEROBACTER INFECTION
     Dosage: 5 MIU TOTAL DAILY
     Route: 042
     Dates: start: 20081218, end: 20090224
  7. COLIMYCINE [Concomitant]
     Dosage: 2.5 MIU TOTAL DAILY
     Route: 042
     Dates: start: 20090225, end: 20090228

REACTIONS (6)
  - ALANINE AMINOTRANSFERASE INCREASED [None]
  - BILIRUBIN CONJUGATED INCREASED [None]
  - CONDITION AGGRAVATED [None]
  - GAMMA-GLUTAMYLTRANSFERASE INCREASED [None]
  - ILEUS [None]
  - OEDEMATOUS PANCREATITIS [None]
